FAERS Safety Report 17007617 (Version 2)
Quarter: 2020Q1

REPORT INFORMATION
  Report Type: Spontaneous
  Country: ES (occurrence: ES)
  Receive Date: 20191108
  Receipt Date: 20200122
  Transmission Date: 20200409
  Serious: Yes (Life-Threatening, Hospitalization)
  Sender: FDA-Public Use
  Company Number: ES-SUN PHARMACEUTICAL INDUSTRIES LTD-2019RR-226739

PATIENT
  Age: 81 Year
  Sex: Male

DRUGS (4)
  1. ACETILSALICILICO ACIDO (176A) [Interacting]
     Active Substance: ASPIRIN
     Indication: ISCHAEMIC CARDIOMYOPATHY
     Dosage: 100 MILLIGRAMS, DAILY
     Route: 048
     Dates: start: 20150324, end: 20171121
  2. ACENOCUMAROL (220A) [Interacting]
     Active Substance: ACENOCOUMAROL
     Indication: ATRIAL FIBRILLATION
     Dosage: ()
     Route: 048
     Dates: start: 2007, end: 20171121
  3. OMEPRAZOLE. [Suspect]
     Active Substance: OMEPRAZOLE
     Indication: PROPHYLAXIS
     Dosage: 20 MILLIGRAMS, DAILY
     Route: 048
     Dates: start: 20160928
  4. DUTASTERIDA (2893A) [Concomitant]
     Indication: BENIGN PROSTATIC HYPERPLASIA
     Dosage: 0.5 MILLIGRAM, DAILY
     Route: 048
     Dates: start: 20170531, end: 20171122

REACTIONS (1)
  - Haemorrhage intracranial [Recovered/Resolved with Sequelae]

NARRATIVE: CASE EVENT DATE: 20171121
